FAERS Safety Report 19417463 (Version 1)
Quarter: 2021Q2

REPORT INFORMATION
  Report Type: Spontaneous
  Country: US (occurrence: US)
  Receive Date: 20210615
  Receipt Date: 20210615
  Transmission Date: 20210717
  Serious: Yes (Disabling)
  Sender: FDA-Public Use
  Company Number: None

PATIENT
  Age: 65 Year
  Sex: Male
  Weight: 90 kg

DRUGS (2)
  1. CIPROFLOXACIN. [Suspect]
     Active Substance: CIPROFLOXACIN
     Indication: CYSTITIS
     Dosage: ?          QUANTITY:1 TABLET(S); ONLY TOOK 4 TABS?
     Route: 048
     Dates: start: 20200711, end: 20200718
  2. TAMSULOSIN [Suspect]
     Active Substance: TAMSULOSIN

REACTIONS (14)
  - Tendon pain [None]
  - Paraesthesia [None]
  - Hot flush [None]
  - Gastric polyps [None]
  - Feeling hot [None]
  - Musculoskeletal disorder [None]
  - Nerve stimulation test abnormal [None]
  - Arthropathy [None]
  - Oedema peripheral [None]
  - Abdominal discomfort [None]
  - Tendon disorder [None]
  - Quality of life decreased [None]
  - Arthralgia [None]
  - Inflammation [None]

NARRATIVE: CASE EVENT DATE: 20200718
